FAERS Safety Report 8134998-5 (Version None)
Quarter: 2012Q1

REPORT INFORMATION
  Report Type: 
  Country: None (occurrence: None)
  Receive Date: 20120214
  Receipt Date: 20120210
  Transmission Date: 20120608
  Serious: Yes (Other)
  Sender: FDA-Public Use
  Company Number: US-PFIZER INC-2012021338

PATIENT
  Sex: Female

DRUGS (1)
  1. CHANTIX [Suspect]
     Dosage: UNK
     Dates: start: 20120101

REACTIONS (3)
  - APATHY [None]
  - ANXIETY [None]
  - DRUG WITHDRAWAL SYNDROME [None]
